FAERS Safety Report 12927857 (Version 1)
Quarter: 2016Q4

REPORT INFORMATION
  Report Type: Other
  Country: US (occurrence: US)
  Receive Date: 20161110
  Receipt Date: 20161110
  Transmission Date: 20170207
  Serious: No
  Sender: FDA-Public Use
  Company Number: US-LUPIN PHARMACEUTICALS INC.-2016-03872

PATIENT
  Age: 63 Year
  Sex: Female

DRUGS (37)
  1. 5-FLUOROURACIL [Suspect]
     Active Substance: FLUOROURACIL
     Route: 065
  2. LIPITOR [Concomitant]
     Active Substance: ATORVASTATIN CALCIUM
     Indication: PRODUCT USED FOR UNKNOWN INDICATION
     Route: 065
  3. ZOFRAN [Concomitant]
     Active Substance: ONDANSETRON HYDROCHLORIDE
     Indication: PRODUCT USED FOR UNKNOWN INDICATION
     Route: 065
  4. 5-FLUOROURACIL [Suspect]
     Active Substance: FLUOROURACIL
     Route: 065
     Dates: end: 201005
  5. IRINOTECAN [Suspect]
     Active Substance: IRINOTECAN
     Route: 065
  6. ZOLPIDEM [Concomitant]
     Active Substance: ZOLPIDEM\ZOLPIDEM TARTRATE
     Indication: PRODUCT USED FOR UNKNOWN INDICATION
     Route: 065
  7. LOPERAMIDE [Concomitant]
     Active Substance: LOPERAMIDE
     Indication: PRODUCT USED FOR UNKNOWN INDICATION
     Route: 065
  8. ZANTAC [Concomitant]
     Active Substance: RANITIDINE HYDROCHLORIDE
     Indication: PRODUCT USED FOR UNKNOWN INDICATION
     Route: 065
  9. FOLINIC ACID [Suspect]
     Active Substance: LEUCOVORIN
     Route: 065
     Dates: end: 201005
  10. FOLINIC ACID [Suspect]
     Active Substance: LEUCOVORIN
     Route: 065
     Dates: end: 200909
  11. FOLINIC ACID [Suspect]
     Active Substance: LEUCOVORIN
     Route: 065
  12. 5-FLUOROURACIL [Suspect]
     Active Substance: FLUOROURACIL
     Route: 065
  13. XELODA [Suspect]
     Active Substance: CAPECITABINE
     Route: 065
  14. AMITRIPTYLINE [Concomitant]
     Active Substance: AMITRIPTYLINE
     Indication: PRODUCT USED FOR UNKNOWN INDICATION
     Route: 065
  15. FOLINIC ACID [Suspect]
     Active Substance: LEUCOVORIN
     Route: 065
  16. 5-FLUOROURACIL [Suspect]
     Active Substance: FLUOROURACIL
     Route: 065
     Dates: end: 200909
  17. IRINOTECAN [Suspect]
     Active Substance: IRINOTECAN
     Route: 065
     Dates: end: 201005
  18. IRINOTECAN [Suspect]
     Active Substance: IRINOTECAN
     Route: 065
  19. IRINOTECAN [Suspect]
     Active Substance: IRINOTECAN
     Route: 065
  20. AVASTIN [Suspect]
     Active Substance: BEVACIZUMAB
     Route: 065
  21. VITAMIN D [Concomitant]
     Active Substance: CHOLECALCIFEROL
     Indication: PRODUCT USED FOR UNKNOWN INDICATION
     Route: 065
  22. METOPROLOL. [Concomitant]
     Active Substance: METOPROLOL
     Indication: PRODUCT USED FOR UNKNOWN INDICATION
     Route: 065
  23. HYDROCODONE [Concomitant]
     Active Substance: HYDROCODONE
     Indication: PRODUCT USED FOR UNKNOWN INDICATION
     Route: 065
  24. FOLINIC ACID [Suspect]
     Active Substance: LEUCOVORIN
     Indication: COLON CANCER METASTATIC
     Route: 065
     Dates: end: 200909
  25. 5-FLUOROURACIL [Suspect]
     Active Substance: FLUOROURACIL
     Indication: COLON CANCER METASTATIC
     Route: 065
     Dates: end: 200909
  26. XELODA [Suspect]
     Active Substance: CAPECITABINE
     Indication: COLON CANCER METASTATIC
     Route: 065
     Dates: start: 201005
  27. METFORMIN [Suspect]
     Active Substance: METFORMIN HYDROCHLORIDE
     Indication: PRODUCT USED FOR UNKNOWN INDICATION
     Route: 065
  28. IRINOTECAN [Suspect]
     Active Substance: IRINOTECAN
     Indication: COLON CANCER METASTATIC
     Route: 065
     Dates: end: 200909
  29. IRINOTECAN [Suspect]
     Active Substance: IRINOTECAN
     Route: 065
  30. AVASTIN [Suspect]
     Active Substance: BEVACIZUMAB
     Route: 065
     Dates: start: 201210
  31. CITALOPRAM [Concomitant]
     Active Substance: CITALOPRAM HYDROBROMIDE
     Indication: PRODUCT USED FOR UNKNOWN INDICATION
     Route: 065
  32. BENADRYL [Concomitant]
     Active Substance: DIPHENHYDRAMINE HYDROCHLORIDE
     Indication: PRODUCT USED FOR UNKNOWN INDICATION
     Route: 065
  33. AVASTIN [Suspect]
     Active Substance: BEVACIZUMAB
     Indication: COLON CANCER METASTATIC
     Route: 065
     Dates: end: 200909
  34. AVASTIN [Suspect]
     Active Substance: BEVACIZUMAB
     Route: 065
     Dates: end: 201005
  35. LANSOPRAZOLE. [Suspect]
     Active Substance: LANSOPRAZOLE
     Indication: PRODUCT USED FOR UNKNOWN INDICATION
     Route: 065
  36. CELECOXIB. [Concomitant]
     Active Substance: CELECOXIB
     Indication: PRODUCT USED FOR UNKNOWN INDICATION
     Route: 065
  37. MECLIZINE [Concomitant]
     Active Substance: MECLIZINE HYDROCHLORIDE
     Indication: PRODUCT USED FOR UNKNOWN INDICATION
     Route: 065

REACTIONS (2)
  - Gastrointestinal disorder [Unknown]
  - Hypomagnesaemia [Recovering/Resolving]
